FAERS Safety Report 23702284 (Version 4)
Quarter: 2024Q2

REPORT INFORMATION
  Report Type: Spontaneous
  Country: US (occurrence: US)
  Receive Date: 20240403
  Receipt Date: 20240530
  Transmission Date: 20240715
  Serious: No
  Sender: FDA-Public Use
  Company Number: US-SA-SAC20240401001309

PATIENT
  Age: 70 Year
  Sex: Female

DRUGS (2)
  1. DUPIXENT [Suspect]
     Active Substance: DUPILUMAB
     Indication: Asthma
     Dosage: 600 MG, 1X
     Route: 058
     Dates: start: 20231129, end: 20231129
  2. DUPIXENT [Suspect]
     Active Substance: DUPILUMAB
     Dosage: 300 MG, QOW
     Route: 058
     Dates: start: 202311, end: 20240228

REACTIONS (6)
  - Alopecia [Not Recovered/Not Resolved]
  - Influenza [Recovering/Resolving]
  - Rhinorrhoea [Recovering/Resolving]
  - Cough [Recovering/Resolving]
  - Sputum discoloured [Recovering/Resolving]
  - Oropharyngeal pain [Recovering/Resolving]

NARRATIVE: CASE EVENT DATE: 20240314
